FAERS Safety Report 23070616 (Version 2)
Quarter: 2023Q4

REPORT INFORMATION
  Report Type: Report from Study
  Country: US (occurrence: US)
  Receive Date: 20231016
  Receipt Date: 20231107
  Transmission Date: 20240110
  Serious: Yes (Other)
  Sender: FDA-Public Use
  Company Number: US-BAYER-2023A140420

PATIENT
  Age: 66 Year
  Sex: Female

DRUGS (1)
  1. STIVARGA [Suspect]
     Active Substance: REGORAFENIB
     Indication: Appendix cancer
     Dosage: 160 MG, QD (DAILY ON DAYS 1-21 THEN OFF DAYS 22-28 EVERY 28 DAYS)
     Route: 048
     Dates: start: 20230928

REACTIONS (10)
  - Intra-abdominal fluid collection [Unknown]
  - Abdominal pain upper [Not Recovered/Not Resolved]
  - Constipation [Not Recovered/Not Resolved]
  - Insomnia [Not Recovered/Not Resolved]
  - Vomiting [Not Recovered/Not Resolved]
  - Asthenia [Not Recovered/Not Resolved]
  - Product dose omission issue [None]
  - Nausea [Unknown]
  - Off label use [None]
  - Drug ineffective [Not Recovered/Not Resolved]
